FAERS Safety Report 12443594 (Version 4)
Quarter: 2016Q2

REPORT INFORMATION
  Report Type: Report from Study
  Country: US (occurrence: US)
  Receive Date: 20160607
  Receipt Date: 20160613
  Transmission Date: 20160815
  Serious: Yes (Hospitalization)
  Sender: FDA-Public Use
  Company Number: US-ABBVIE-16P-163-1644137-00

PATIENT
  Age: 25 Year
  Sex: Female

DRUGS (17)
  1. PRENATAL VITAMINS [Concomitant]
     Active Substance: VITAMINS
     Indication: ROUTINE HEALTH MAINTENANCE
     Route: 048
     Dates: start: 20140325
  2. AZATHIOPRINE. [Suspect]
     Active Substance: AZATHIOPRINE
     Indication: COLITIS ULCERATIVE
     Route: 048
     Dates: start: 20140410
  3. VITAMIN D3 CALCIUM [Concomitant]
     Active Substance: CALCIUM\CHOLECALCIFEROL
     Indication: MINERAL SUPPLEMENTATION
     Route: 048
     Dates: start: 20140325
  4. FOLATE [Concomitant]
     Active Substance: FOLATE SODIUM
     Indication: CONGENITAL ANOMALY
     Route: 048
     Dates: start: 20150330
  5. PROBIOTIC [Concomitant]
     Active Substance: PROBIOTICS NOS
     Indication: GASTROINTESTINAL DISORDER
     Route: 048
     Dates: start: 20150507
  6. PROBIOTIC [Concomitant]
     Active Substance: PROBIOTICS NOS
     Indication: PROPHYLAXIS
  7. SUMATRIPTAN. [Concomitant]
     Active Substance: SUMATRIPTAN
     Indication: MIGRAINE
     Route: 048
     Dates: start: 20150330
  8. NEURONTIN [Concomitant]
     Active Substance: GABAPENTIN
     Indication: PAIN IN EXTREMITY
     Route: 048
     Dates: start: 20150727
  9. LEXAPRO [Concomitant]
     Active Substance: ESCITALOPRAM OXALATE
     Indication: DEPRESSION
     Route: 048
     Dates: start: 20151013
  10. VITAMIN D3 CALCIUM [Concomitant]
     Active Substance: CALCIUM\CHOLECALCIFEROL
     Indication: VITAMIN SUPPLEMENTATION
  11. FOLATE [Concomitant]
     Active Substance: FOLATE SODIUM
     Indication: PROPHYLAXIS
  12. LEVSIN [Concomitant]
     Active Substance: HYOSCYAMINE SULFATE
     Indication: ABDOMINAL PAIN UPPER
     Route: 060
     Dates: start: 20140924
  13. AZATHIOPRINE. [Suspect]
     Active Substance: AZATHIOPRINE
     Route: 048
     Dates: start: 20150720
  14. NEXPLANON [Concomitant]
     Active Substance: ETONOGESTREL
     Indication: CONTRACEPTION
     Dosage: ROUTE: SUBDERMAL
     Dates: start: 20140212
  15. HUMIRA [Suspect]
     Active Substance: ADALIMUMAB
     Indication: COLITIS ULCERATIVE
     Route: 058
     Dates: start: 20150720
  16. CYMBALTA [Concomitant]
     Active Substance: DULOXETINE HYDROCHLORIDE
     Indication: DEPRESSION
     Route: 048
     Dates: start: 20140910
  17. ZOFRAN [Concomitant]
     Active Substance: ONDANSETRON HYDROCHLORIDE
     Indication: NAUSEA
     Route: 060
     Dates: start: 20140330

REACTIONS (2)
  - Haematochezia [Recovered/Resolved]
  - Haematemesis [Recovered/Resolved]

NARRATIVE: CASE EVENT DATE: 20160216
